FAERS Safety Report 17033076 (Version 1)
Quarter: 2019Q4

REPORT INFORMATION
  Report Type: Spontaneous
  Country: US (occurrence: US)
  Receive Date: 20191014
  Receipt Date: 20191014
  Transmission Date: 20200122
  Serious: Yes (Hospitalization)
  Sender: FDA-Public Use
  Company Number: None

PATIENT
  Age: 30 Year
  Sex: Female

DRUGS (2)
  1. SILDENAFIL  20MG [Suspect]
     Active Substance: SILDENAFIL
     Indication: GANGRENE
     Route: 048
     Dates: start: 20190213
  2. SILDENAFIL  20MG [Suspect]
     Active Substance: SILDENAFIL
     Indication: RAYNAUD^S PHENOMENON
     Route: 048
     Dates: start: 20190213

REACTIONS (1)
  - Infection [None]

NARRATIVE: CASE EVENT DATE: 201910
